FAERS Safety Report 9355720 (Version 1)
Quarter: 2013Q2

REPORT INFORMATION
  Report Type: Spontaneous
  Country: US (occurrence: US)
  Receive Date: 20130619
  Receipt Date: 20130619
  Transmission Date: 20140414
  Serious: No
  Sender: FDA-Public Use
  Company Number: US-BAYER-2013-075102

PATIENT
  Age: 50 Year
  Sex: Female

DRUGS (2)
  1. CLIMARA PRO [Suspect]
     Indication: HOT FLUSH
     Dosage: UNK UNK, CONT
     Route: 062
     Dates: start: 20130615
  2. CLIMARA PRO [Suspect]
     Indication: AFFECTIVE DISORDER

REACTIONS (2)
  - Drug dose omission [None]
  - Product adhesion issue [None]
